FAERS Safety Report 8011524 (Version 7)
Quarter: 2013Q3

REPORT INFORMATION
  Report Type: Report from Study
  Country: DE (occurrence: DE)
  Receive Date: 20110627
  Receipt Date: 20130828
  Transmission Date: 20140515
  Serious: Yes (Hospitalization, Disabling)
  Sender: FDA-Public Use
  Company Number: DE-UCBSA-032181

PATIENT
  Age: 47 Year
  Sex: Male
  Weight: 87 kg

DRUGS (13)
  1. CIMZIA [Suspect]
     Indication: RHEUMATOID ARTHRITIS
     Route: 058
     Dates: start: 20110914, end: 20120207
  2. CIMZIA [Suspect]
     Indication: RHEUMATOID ARTHRITIS
     Dosage: NO OF DOSES RECEIVED :24
     Route: 058
     Dates: start: 20101111, end: 20110913
  3. PREDNISOLONE [Concomitant]
     Indication: RHEUMATOID ARTHRITIS
     Dates: start: 20100630
  4. FOLIC ACID [Concomitant]
     Indication: PRODUCT USED FOR UNKNOWN INDICATION
     Dosage: ROUTE : 144
     Dates: start: 20090429
  5. OMEPRAZOL [Concomitant]
     Indication: ANTACID THERAPY
     Dosage: ROUTE 144
     Dates: start: 20090312
  6. METHOTREXATE [Concomitant]
     Indication: RHEUMATOID ARTHRITIS
     Dosage: QS
     Dates: start: 20090429
  7. AMLODIPINE [Concomitant]
     Indication: HYPERTENSION
  8. ALENDRONIC ACID [Concomitant]
     Indication: OSTEOPOROSIS
     Route: 048
     Dates: start: 20100412, end: 20110502
  9. HYDROCHLOROTHIAZIDE-BETA [Concomitant]
     Indication: HYPERTENSION
  10. MARCUMAR [Concomitant]
     Indication: PULMONARY EMBOLISM
     Dosage: IF NEEDED
     Dates: start: 201003
  11. DEKRISTOL [Concomitant]
     Indication: OSTEOPOROSIS
     Dosage: DOSE  20000 IE  FREQ: QA
     Dates: start: 20100218
  12. METEX [Concomitant]
     Indication: RHEUMATOID ARTHRITIS
     Dosage: QS
     Dates: start: 20111219
  13. PARACETAMOL COMP [Concomitant]
     Indication: RHEUMATOID ARTHRITIS
     Dates: start: 20110615

REACTIONS (1)
  - Bone infarction [Not Recovered/Not Resolved]
